FAERS Safety Report 4663038-5 (Version None)
Quarter: 2005Q2

REPORT INFORMATION
  Report Type: 
  Country: None (occurrence: None)
  Receive Date: 20050513
  Receipt Date: 20050215
  Transmission Date: 20051028
  Serious: Yes (Death)
  Sender: FDA-Public Use
  Company Number: ENT 2005-0022

PATIENT
  Age: 71 Year
  Sex: Male

DRUGS (2)
  1. COMTAN [Suspect]
     Indication: PARKINSON'S DISEASE
     Dosage: 400 MG ORAL
     Route: 048
  2. DOPAMINE HCL [Concomitant]

REACTIONS (1)
  - DEATH [None]
